FAERS Safety Report 20942810 (Version 1)
Quarter: 2022Q2

REPORT INFORMATION
  Report Type: Spontaneous
  Country: ES (occurrence: ES)
  Receive Date: 20220610
  Receipt Date: 20220610
  Transmission Date: 20220720
  Serious: Yes (Other)
  Sender: FDA-Public Use
  Company Number: ES-SUN PHARMACEUTICAL INDUSTRIES LTD-2022R1-339841

PATIENT
  Age: 54 Year
  Sex: Male

DRUGS (3)
  1. HYDROXYCHLOROQUINE [Suspect]
     Active Substance: HYDROXYCHLOROQUINE
     Indication: Cytokine storm
     Route: 065
  2. LOPINAVIR\RITONAVIR [Suspect]
     Active Substance: LOPINAVIR\RITONAVIR
     Indication: Cytokine storm
     Route: 065
  3. INTERFERON BETA [Suspect]
     Active Substance: INTERFERON BETA
     Indication: Cytokine storm
     Route: 065

REACTIONS (1)
  - Therapy non-responder [Unknown]
